FAERS Safety Report 8964311 (Version 1)
Quarter: 2012Q4

REPORT INFORMATION
  Report Type: 
  Country: US (occurrence: US)
  Receive Date: 20121214
  Receipt Date: 20121214
  Transmission Date: 20130627
  Serious: No
  Sender: FDA-Public Use
  Company Number: US-GLAXOSMITHKLINE-A0966222A

PATIENT
  Age: 61 Year
  Sex: Male

DRUGS (3)
  1. AVODART [Suspect]
     Indication: BENIGN PROSTATIC HYPERPLASIA
     Dosage: 1CAP Per day
     Route: 048
     Dates: end: 20120210
  2. TAMSULOSIN [Suspect]
     Indication: BENIGN PROSTATIC HYPERPLASIA
     Dosage: 1TAB Per day
     Route: 048
     Dates: end: 20120210
  3. OXYBUTYNIN [Concomitant]

REACTIONS (2)
  - Libido decreased [Unknown]
  - Hair growth abnormal [Unknown]
